FAERS Safety Report 12892285 (Version 2)
Quarter: 2016Q4

REPORT INFORMATION
  Report Type: Spontaneous
  Country: ZA (occurrence: ZA)
  Receive Date: 20161028
  Receipt Date: 20161226
  Transmission Date: 20170207
  Serious: Yes (Death, Hospitalization, Other)
  Sender: FDA-Public Use
  Company Number: ZA-ALEMBIC PHARMACUETICALS LIMITED-2016SCAL000858

PATIENT

DRUGS (4)
  1. METHOTREXATE. [Suspect]
     Active Substance: METHOTREXATE
     Indication: RHEUMATOID ARTHRITIS
     Dosage: 10-15 MG, WEEKLY
  2. METHOTREXATE. [Suspect]
     Active Substance: METHOTREXATE
     Dosage: MEAN DOSE: 21.7 (3.5) MG/WEEK
  3. LEFLUNOMIDE. [Suspect]
     Active Substance: LEFLUNOMIDE
     Indication: RHEUMATOID ARTHRITIS
     Dosage: 20 MG, QD
  4. FOLATE [Concomitant]
     Active Substance: FOLATE SODIUM
     Indication: RHEUMATOID ARTHRITIS
     Dosage: UNK

REACTIONS (17)
  - Leukopenia [Recovered/Resolved]
  - Sepsis [Recovered/Resolved]
  - Transaminases increased [Unknown]
  - Hepatotoxicity [Unknown]
  - Pneumonitis [Recovered/Resolved]
  - Toxicity to various agents [Unknown]
  - Drug ineffective [Unknown]
  - Sleep disorder [Unknown]
  - Hypertension [Unknown]
  - Pulmonary tuberculosis [Unknown]
  - Drug intolerance [Unknown]
  - Lower respiratory tract infection [Fatal]
  - Headache [Unknown]
  - Gastrointestinal disorder [Unknown]
  - Hot flush [Unknown]
  - Rash [Unknown]
  - Paraesthesia [Unknown]
